FAERS Safety Report 7719355-5 (Version None)
Quarter: 2011Q3

REPORT INFORMATION
  Report Type: 
  Country: None (occurrence: None)
  Receive Date: 20110830
  Receipt Date: 20110829
  Transmission Date: 20111222
  Serious: Yes (Other)
  Sender: FDA-Public Use
  Company Number: FR-AMGEN-FRASP2011043974

PATIENT
  Sex: Female

DRUGS (2)
  1. VITAMIN K ANTAGONISTS [Concomitant]
     Indication: MYELODYSPLASTIC SYNDROME
  2. ARANESP [Suspect]
     Indication: PRODUCT USED FOR UNKNOWN INDICATION

REACTIONS (1)
  - HAEMORRHAGE [None]
